FAERS Safety Report 11812295 (Version 2)
Quarter: 2015Q4

REPORT INFORMATION
  Report Type: Spontaneous
  Country: FR (occurrence: FR)
  Receive Date: 20151208
  Receipt Date: 20151223
  Transmission Date: 20160305
  Serious: Yes (Other)
  Sender: FDA-Public Use
  Company Number: FR-BAUSCH-BL-2015-029556

PATIENT
  Age: 72 Year
  Sex: Female

DRUGS (3)
  1. LEVOTHYROXINE SODIUM. [Concomitant]
     Active Substance: LEVOTHYROXINE SODIUM
     Indication: PRODUCT USED FOR UNKNOWN INDICATION
  2. RALOXIFENE. [Concomitant]
     Active Substance: RALOXIFENE
     Indication: PRODUCT USED FOR UNKNOWN INDICATION
  3. MOVIPREP [Suspect]
     Active Substance: ASCORBIC ACID\POLYETHYLENE GLYCOL 3350\POTASSIUM CHLORIDE\SODIUM ASCORBATE\SODIUM CHLORIDE\SODIUM SULFATE
     Indication: THERAPEUTIC PROCEDURE
     Route: 048
     Dates: start: 20151124, end: 20151124

REACTIONS (1)
  - Rectal haemorrhage [Recovered/Resolved]

NARRATIVE: CASE EVENT DATE: 20151124
